FAERS Safety Report 7874082-9 (Version None)
Quarter: 2011Q4

REPORT INFORMATION
  Report Type: 
  Country: None (occurrence: None)
  Receive Date: 20111030
  Receipt Date: 20110513
  Transmission Date: 20120403
  Serious: No
  Sender: FDA-Public Use
  Company Number: US-AMGEN-USASP2011025097

PATIENT
  Age: 29 Year
  Sex: Female

DRUGS (3)
  1. PLAQUENIL [Concomitant]
     Dates: start: 20050101
  2. ENBREL [Suspect]
     Indication: RHEUMATOID ARTHRITIS
     Dates: start: 20080625, end: 20110130
  3. AZULFIDINE [Concomitant]
     Dates: start: 20060101

REACTIONS (3)
  - MUSCULOSKELETAL STIFFNESS [None]
  - ARTHRALGIA [None]
  - FATIGUE [None]
